FAERS Safety Report 21974458 (Version 1)
Quarter: 2023Q1

REPORT INFORMATION
  Report Type: Spontaneous
  Country: US (occurrence: US)
  Receive Date: 20230209
  Receipt Date: 20230209
  Transmission Date: 20230418
  Serious: Yes (Other)
  Sender: FDA-Public Use
  Company Number: US-ALLERGAN-2302977US

PATIENT
  Sex: Female

DRUGS (2)
  1. REFRESH OPTIVE MEGA-3 [Suspect]
     Active Substance: CARBOXYMETHYLCELLULOSE SODIUM\GLYCERIN\POLYSORBATE 80
     Indication: Dry eye
     Dosage: UNK
     Dates: start: 2022
  2. REFRESH OPTIVE [Suspect]
     Active Substance: CARBOXYMETHYLCELLULOSE SODIUM\GLYCERIN
     Indication: Product used for unknown indication
     Dosage: UNK

REACTIONS (2)
  - Retinal tear [Unknown]
  - Retinal oedema [Unknown]
